FAERS Safety Report 21362315 (Version 1)
Quarter: 2022Q3

REPORT INFORMATION
  Report Type: Other
  Country: KR (occurrence: KR)
  Receive Date: 20220922
  Receipt Date: 20220922
  Transmission Date: 20221026
  Serious: Yes (Hospitalization, Other)
  Sender: FDA-Public Use
  Company Number: KR-DEXPHARM-20221685

PATIENT
  Age: 22 Year
  Sex: Male
  Weight: 79.6 kg

DRUGS (2)
  1. OMEPRAZOLE [Suspect]
     Active Substance: OMEPRAZOLE
     Indication: Abdominal pain upper
     Dosage: 40MG
  2. PANTOPRAZOLE [Suspect]
     Active Substance: PANTOPRAZOLE
     Indication: Abdominal pain upper
     Dosage: 40MG

REACTIONS (5)
  - Gastric polyps [Recovered/Resolved]
  - Gastric mucosal hypertrophy [Recovered/Resolved]
  - Dizziness [Recovered/Resolved]
  - Melaena [Recovered/Resolved]
  - Drug ineffective [Recovered/Resolved]
